FAERS Safety Report 8104560-9 (Version None)
Quarter: 2012Q1

REPORT INFORMATION
  Report Type: 
  Country: None (occurrence: None)
  Receive Date: 20120201
  Receipt Date: 20120126
  Transmission Date: 20120608
  Serious: Yes (Other)
  Sender: FDA-Public Use
  Company Number: FR-MERCK-1201USA03903

PATIENT
  Age: 70 Year
  Sex: Male

DRUGS (2)
  1. PRIMAXIN [Suspect]
     Indication: SEPSIS
     Route: 042
     Dates: start: 20111128, end: 20111130
  2. AMIKACIN [Concomitant]
     Indication: SEPSIS
     Route: 042
     Dates: start: 20111128

REACTIONS (1)
  - GENERALISED ERYTHEMA [None]
